FAERS Safety Report 25526582 (Version 1)
Quarter: 2025Q3

REPORT INFORMATION
  Report Type: Spontaneous
  Country: US (occurrence: US)
  Receive Date: 20250707
  Receipt Date: 20250707
  Transmission Date: 20251020
  Serious: Yes (Other)
  Sender: ABBVIE
  Company Number: US-ABBVIE-6356017

PATIENT

DRUGS (2)
  1. VIIBRYD [Suspect]
     Active Substance: VILAZODONE HYDROCHLORIDE
     Indication: Major depression
     Route: 048
     Dates: start: 2024
  2. VIIBRYD [Suspect]
     Active Substance: VILAZODONE HYDROCHLORIDE
     Indication: Major depression
     Route: 048

REACTIONS (5)
  - Suicidal ideation [Recovering/Resolving]
  - Adjustment disorder with depressed mood [Recovering/Resolving]
  - Sleep terror [Recovering/Resolving]
  - Panic attack [Recovering/Resolving]
  - Intentional product misuse [Unknown]
